FAERS Safety Report 5839560-2 (Version None)
Quarter: 2008Q3

REPORT INFORMATION
  Report Type: 
  Country: None (occurrence: None)
  Receive Date: 20080811
  Receipt Date: 20080730
  Transmission Date: 20090109
  Serious: Yes (Death, Hospitalization, Other)
  Sender: FDA-Public Use
  Company Number: FR-WYE-H05417108

PATIENT
  Age: 81 Year
  Sex: Male

DRUGS (7)
  1. CORDARONE [Suspect]
     Route: 048
  2. ZOLPIDEM [Concomitant]
     Dosage: UNSPECIFIED
     Route: 048
  3. RENITEC [Concomitant]
     Dosage: UNSPECIFIED
     Route: 048
  4. PREVISCAN [Concomitant]
     Dosage: UNSPECIFIED
     Route: 048
  5. LASIX [Concomitant]
  6. ALPRAZOLAM [Concomitant]
     Dosage: UNSPECIFIED
     Route: 048
  7. TRAMADOL HCL [Concomitant]

REACTIONS (5)
  - CONDITION AGGRAVATED [None]
  - DEPRESSION [None]
  - GENERAL PHYSICAL HEALTH DETERIORATION [None]
  - HYPOTHYROIDISM [None]
  - SUICIDE ATTEMPT [None]
